FAERS Safety Report 23536764 (Version 3)
Quarter: 2024Q1

REPORT INFORMATION
  Report Type: Spontaneous
  Country: US (occurrence: US)
  Receive Date: 20240219
  Receipt Date: 20240305
  Transmission Date: 20240410
  Serious: Yes (Hospitalization)
  Sender: FDA-Public Use
  Company Number: US-BRISTOL-MYERS SQUIBB COMPANY-2024-024749

PATIENT
  Age: 68 Year
  Sex: Male

DRUGS (2)
  1. LENALIDOMIDE [Suspect]
     Active Substance: LENALIDOMIDE
     Indication: Liver disorder
     Dosage: TAKE 1 CAPSULE (25 MG TOTAL) BY MOUTH ONCE DAILY FOR 14 DAYS, FOLLOWED BY 7 DAYS OFF OF THERAPY FOR
     Route: 048
     Dates: start: 20240125
  2. LENALIDOMIDE [Suspect]
     Active Substance: LENALIDOMIDE
     Dosage: 21 CAPSULES
     Route: 048

REACTIONS (4)
  - Asthenia [Recovering/Resolving]
  - Off label use [Unknown]
  - Dysstasia [Not Recovered/Not Resolved]
  - Dehydration [Recovering/Resolving]

NARRATIVE: CASE EVENT DATE: 20240101
